FAERS Safety Report 24612984 (Version 2)
Quarter: 2025Q3

REPORT INFORMATION
  Report Type: Spontaneous
  Country: US (occurrence: US)
  Receive Date: 20241113
  Receipt Date: 20250803
  Transmission Date: 20251020
  Serious: Yes (Other)
  Sender: ALEXION PHARMACEUTICALS
  Company Number: US-AstraZeneca-CH-00708761A

PATIENT
  Age: 47 Year
  Sex: Female
  Weight: 81.65 kg

DRUGS (5)
  1. SEROQUEL [Suspect]
     Active Substance: QUETIAPINE FUMARATE
  2. PAXLOVID [Concomitant]
     Active Substance: NIRMATRELVIR\RITONAVIR
     Route: 065
  3. ESTROGENS [Concomitant]
     Active Substance: ESTROGENS
     Route: 065
  4. ESTRADIOL [Concomitant]
     Active Substance: ESTRADIOL
     Route: 065
  5. PROGESTERONE [Concomitant]
     Active Substance: PROGESTERONE
     Route: 065

REACTIONS (5)
  - Foetal death [Unknown]
  - Chest pain [Unknown]
  - Malaise [Unknown]
  - Pyrexia [Unknown]
  - Abdominal discomfort [Unknown]
